FAERS Safety Report 18397357 (Version 1)
Quarter: 2020Q4

REPORT INFORMATION
  Report Type: Spontaneous
  Country: US (occurrence: US)
  Receive Date: 20201017
  Receipt Date: 20201017
  Transmission Date: 20210114
  Serious: Yes (Other)
  Sender: FDA-Public Use
  Company Number: None

PATIENT
  Age: 41 Year
  Sex: Female
  Weight: 51.3 kg

DRUGS (2)
  1. VITAMIN D3 [Concomitant]
     Active Substance: CHOLECALCIFEROL
  2. CHILDRENS ZYRTEC [Suspect]
     Active Substance: CETIRIZINE HYDROCHLORIDE
     Indication: HYPERSENSITIVITY
     Dosage: ?          QUANTITY:0.25 TEASPOON(S);?
     Route: 048
     Dates: start: 20200825, end: 20200825

REACTIONS (8)
  - Hyperacusis [None]
  - Condition aggravated [None]
  - Nervous system disorder [None]
  - Asthenia [None]
  - Photophobia [None]
  - Cognitive disorder [None]
  - Headache [None]
  - Emotional distress [None]

NARRATIVE: CASE EVENT DATE: 20200825
